FAERS Safety Report 19906873 (Version 8)
Quarter: 2021Q4

REPORT INFORMATION
  Report Type: Report from Study
  Country: KR (occurrence: None)
  Receive Date: 20211001
  Receipt Date: 20211216
  Transmission Date: 20220303
  Serious: Yes (Hospitalization)
  Sender: FDA-Public Use
  Company Number: KR-EISAI MEDICAL RESEARCH-EC-2021-100540

PATIENT
  Age: 56 Year
  Sex: Male
  Weight: 79.3 kg

DRUGS (13)
  1. LENVATINIB [Suspect]
     Active Substance: LENVATINIB
     Indication: Squamous cell carcinoma of head and neck
     Route: 048
     Dates: start: 20210727, end: 20210908
  2. LENVATINIB [Suspect]
     Active Substance: LENVATINIB
     Route: 048
     Dates: start: 20210924, end: 20211020
  3. PEMBROLIZUMAB [Suspect]
     Active Substance: PEMBROLIZUMAB
     Indication: Squamous cell carcinoma of head and neck
     Route: 041
     Dates: start: 20210727, end: 20210727
  4. PEMBROLIZUMAB [Suspect]
     Active Substance: PEMBROLIZUMAB
     Route: 041
     Dates: start: 20210819, end: 20210909
  5. PEMBROLIZUMAB [Suspect]
     Active Substance: PEMBROLIZUMAB
     Route: 041
     Dates: start: 20210927, end: 20210927
  6. ZOLPIDEM TARTRATE [Concomitant]
     Active Substance: ZOLPIDEM TARTRATE
     Dates: start: 202005
  7. ULTRACET [Concomitant]
     Active Substance: ACETAMINOPHEN\TRAMADOL HYDROCHLORIDE
     Dates: start: 20210531
  8. REBAMIPIDE [Concomitant]
     Active Substance: REBAMIPIDE
     Dates: start: 20210603
  9. ACECLOFENAC [Concomitant]
     Active Substance: ACECLOFENAC
     Dates: start: 20210603
  10. GABAPENTIN [Concomitant]
     Active Substance: GABAPENTIN
     Dates: start: 20210603
  11. GODEX [Concomitant]
     Dates: start: 20210621
  12. URSODIOL [Concomitant]
     Active Substance: URSODIOL
     Dates: start: 20210621
  13. DIETARY SUPPLEMENT\HERBALS\MILK THISTLE [Concomitant]
     Active Substance: DIETARY SUPPLEMENT\HERBALS\MILK THISTLE
     Dates: start: 20210727, end: 20210809

REACTIONS (2)
  - Stomatitis [Not Recovered/Not Resolved]
  - Aspartate aminotransferase increased [Not Recovered/Not Resolved]

NARRATIVE: CASE EVENT DATE: 20210807
